FAERS Safety Report 16668480 (Version 1)
Quarter: 2019Q3

REPORT INFORMATION
  Report Type: Spontaneous
  Country: US (occurrence: US)
  Receive Date: 20190805
  Receipt Date: 20190805
  Transmission Date: 20191004
  Serious: No
  Sender: FDA-Public Use
  Company Number: US-PFIZER INC-2017488057

PATIENT
  Age: 52 Year
  Sex: Female
  Weight: 141 kg

DRUGS (1)
  1. LYRICA [Suspect]
     Active Substance: PREGABALIN
     Indication: MULTIPLE SCLEROSIS
     Dosage: 75 MG CAPSULE, TAKE 2 CAPSULES (150 MG TOTAL) 2 TIMES A DAY)
     Route: 048

REACTIONS (3)
  - Sensitivity to weather change [Unknown]
  - Off label use [Unknown]
  - Product use in unapproved indication [Unknown]
